FAERS Safety Report 9739774 (Version 2)
Quarter: 2014Q2

REPORT INFORMATION
  Report Type: Spontaneous
  Country: US (occurrence: US)
  Receive Date: 20131209
  Receipt Date: 20140609
  Transmission Date: 20141212
  Serious: Yes (Other)
  Sender: FDA-Public Use
  Company Number: US-ASTELLAS-2013US010218

PATIENT
  Age: 72 Year
  Sex: Male
  Weight: 106 kg

DRUGS (2)
  1. XTANDI [Suspect]
     Indication: PROSTATE CANCER METASTATIC
     Route: 048
     Dates: start: 20130920, end: 20140116
  2. NAPROXEN [Concomitant]
     Indication: ANTIINFLAMMATORY THERAPY
     Dosage: 220 MG, TWICE DAILY AS NEEDED
     Route: 048

REACTIONS (2)
  - Malignant neoplasm progression [Recovering/Resolving]
  - Pain [Not Recovered/Not Resolved]
